FAERS Safety Report 14184870 (Version 1)
Quarter: 2017Q4

REPORT INFORMATION
  Report Type: Spontaneous
  Country: US (occurrence: US)
  Receive Date: 20171114
  Receipt Date: 20171114
  Transmission Date: 20180321
  Serious: No
  Sender: FDA-Public Use
  Company Number: US-ASTRAZENECA-2014SE62748

PATIENT
  Age: 66 Year
  Sex: Female
  Weight: 64.4 kg

DRUGS (2)
  1. ARIMIDEX [Suspect]
     Active Substance: ANASTROZOLE
     Indication: BREAST CANCER
     Route: 048
  2. RABIES VACCINE [Suspect]
     Active Substance: RABIES VACCINE
     Indication: RABIES IMMUNISATION
     Route: 065

REACTIONS (6)
  - Hyperlipidaemia [Unknown]
  - Allergy to vaccine [Unknown]
  - Pruritus [Unknown]
  - Cardiac disorder [Unknown]
  - Alopecia [Not Recovered/Not Resolved]
  - Fatigue [Not Recovered/Not Resolved]
